FAERS Safety Report 5696213-1 (Version None)
Quarter: 2008Q2

REPORT INFORMATION
  Report Type: 
  Country: None (occurrence: None)
  Receive Date: 20080404
  Receipt Date: 20080404
  Transmission Date: 20081010
  Serious: Yes (Other)
  Sender: FDA-Public Use
  Company Number: None

PATIENT
  Age: 70 Year
  Sex: Female
  Weight: 81.6475 kg

DRUGS (4)
  1. SINGULAIR [Suspect]
     Indication: ASTHMA
     Dosage: ONE TABLET ONCE A DAY PO
     Route: 048
  2. PULMICORT [Concomitant]
  3. NASACORT [Concomitant]
  4. ESTRADIAL [Concomitant]

REACTIONS (3)
  - HEART RATE INCREASED [None]
  - MIDDLE INSOMNIA [None]
  - NIGHTMARE [None]
